FAERS Safety Report 8765458 (Version 1)
Quarter: 2012Q4

REPORT INFORMATION
  Report Type: 
  Country: KR (occurrence: KR)
  Receive Date: 20120903
  Receipt Date: 20120903
  Transmission Date: 20130627
  Serious: Yes (Other)
  Sender: FDA-Public Use
  Company Number: KR-PFIZER INC-2012194690

PATIENT
  Age: 60 Year
  Sex: Male

DRUGS (3)
  1. FLUOROURACIL [Suspect]
     Indication: COLON CANCER
     Dosage: 425 mg/m2, cyclic, d1-5 every 4 weeks
  2. FOLINIC ACID [Suspect]
     Dosage: 20 mg/m2, cyclic, d1-5, every 4 weeks
  3. DOXIFLURIDINE [Concomitant]
     Dosage: 100 mg, UNK

REACTIONS (2)
  - Second primary malignancy [Recovered/Resolved]
  - Acute myeloid leukaemia [Recovered/Resolved]
